FAERS Safety Report 4294158-5 (Version None)
Quarter: 2004Q1

REPORT INFORMATION
  Report Type: 
  Country: None (occurrence: None)
  Receive Date: 20040213
  Receipt Date: 20031209
  Transmission Date: 20041129
  Serious: Yes (Hospitalization)
  Sender: FDA-Public Use
  Company Number: PHRM2003FR03307

PATIENT
  Age: 43 Year
  Sex: Female
  Weight: 55 kg

DRUGS (7)
  1. TRILEPTAL [Suspect]
     Indication: BIPOLAR I DISORDER
     Dosage: 600 MG, BID
     Route: 048
     Dates: start: 20031104, end: 20031202
  2. SOLIAN [Concomitant]
     Indication: BIPOLAR I DISORDER
     Dosage: 400 MG DAILY
     Route: 048
     Dates: start: 20031104, end: 20031201
  3. INSULIN [Concomitant]
     Indication: DIABETES MELLITUS INSULIN-DEPENDENT
     Route: 065
  4. RIVOTRIL [Suspect]
     Route: 048
     Dates: start: 20031010, end: 20031202
  5. DOLIPRANE [Concomitant]
     Route: 048
  6. TRIATEC [Concomitant]
     Route: 048
  7. DEBRIDAT ^PARKE DAVIS^ [Concomitant]
     Route: 048

REACTIONS (6)
  - BLOOD ALKALINE PHOSPHATASE INCREASED [None]
  - HEPATIC ENZYME INCREASED [None]
  - HEPATITIS [None]
  - HYPONATRAEMIA [None]
  - INFLUENZA LIKE ILLNESS [None]
  - PYREXIA [None]
